FAERS Safety Report 5801643-0 (Version None)
Quarter: 2008Q3

REPORT INFORMATION
  Report Type: 
  Country: None (occurrence: None)
  Receive Date: 20080707
  Receipt Date: 20080626
  Transmission Date: 20090109
  Serious: Yes (Other)
  Sender: FDA-Public Use
  Company Number: B0359422A

PATIENT
  Age: 34 Year
  Sex: Female

DRUGS (1)
  1. SEROXAT [Suspect]
     Route: 065
     Dates: start: 20001117, end: 20010823

REACTIONS (12)
  - AGGRESSION [None]
  - AGITATION [None]
  - ANXIETY [None]
  - DIARRHOEA [None]
  - DRUG WITHDRAWAL SYNDROME [None]
  - DRY MOUTH [None]
  - IRRITABILITY [None]
  - NAUSEA [None]
  - PALPITATIONS [None]
  - SUICIDAL IDEATION [None]
  - SUICIDE ATTEMPT [None]
  - VOMITING [None]
